FAERS Safety Report 11253107 (Version 2)
Quarter: 2015Q3

REPORT INFORMATION
  Report Type: Spontaneous
  Country: US (occurrence: US)
  Receive Date: 20150709
  Receipt Date: 20150731
  Transmission Date: 20151125
  Serious: Yes (Hospitalization)
  Sender: FDA-Public Use
  Company Number: US-PAR PHARMACEUTICAL, INC-2015SCPR014114

PATIENT

DRUGS (4)
  1. TRANYLCYPROMINE [Suspect]
     Active Substance: TRANYLCYPROMINE
     Dosage: 60 MG, QD
     Route: 065
     Dates: start: 201503
  2. PARNATE [Suspect]
     Active Substance: TRANYLCYPROMINE SULFATE
     Indication: DEPRESSION
     Dosage: UNK UNK, UNKNOWN
     Route: 065
  3. TRANYLCYPROMINE [Suspect]
     Active Substance: TRANYLCYPROMINE
     Dosage: 90 MG, QD
     Route: 065
     Dates: start: 2015
  4. TRANYLCYPROMINE [Suspect]
     Active Substance: TRANYLCYPROMINE
     Indication: DEPRESSION
     Dosage: 90 MG, QD
     Route: 065

REACTIONS (10)
  - Psychiatric symptom [Unknown]
  - Intentional product use issue [Unknown]
  - Prescribed overdose [Unknown]
  - Adverse event [Unknown]
  - Drug effect incomplete [Unknown]
  - Condition aggravated [Unknown]
  - Off label use [Unknown]
  - Depression [Unknown]
  - Therapeutic response changed [Unknown]
  - Depressed mood [Recovering/Resolving]

NARRATIVE: CASE EVENT DATE: 2015
